FAERS Safety Report 18169222 (Version 1)
Quarter: 2020Q3

REPORT INFORMATION
  Report Type: Spontaneous
  Country: US (occurrence: US)
  Receive Date: 20200819
  Receipt Date: 20200819
  Transmission Date: 20201103
  Serious: Yes (Other)
  Sender: FDA-Public Use
  Company Number: None

PATIENT
  Age: 57 Year
  Sex: Female
  Weight: 74.8 kg

DRUGS (9)
  1. DEXAMETHASONE 6 MG [Concomitant]
     Dates: start: 20200814
  2. IPRATROPIUM HFA INHALER [Concomitant]
     Dates: start: 20200814
  3. ENOXAPARIN 40 MG [Concomitant]
     Active Substance: ENOXAPARIN
     Dates: start: 20200814
  4. ALBUTEROL 90 MCG/INH INHALATION AEROSOL [Concomitant]
     Dates: start: 20200814
  5. ACETAMINOPHEN 650 MG [Concomitant]
     Active Substance: ACETAMINOPHEN
     Dates: start: 20200814
  6. AZITHROMYCIN 250 MG [Concomitant]
     Active Substance: AZITHROMYCIN ANHYDROUS
     Dates: start: 20200814, end: 20200815
  7. PREDNISONE 20 MG [Concomitant]
     Active Substance: PREDNISONE
     Dates: start: 20200814, end: 20200814
  8. REMDESIVIR. [Suspect]
     Active Substance: REMDESIVIR
     Indication: COVID-19
     Dosage: ?          OTHER FREQUENCY:ONCE;?
     Route: 042
     Dates: start: 20200814, end: 20200814
  9. TRAMADOL 50 MG [Concomitant]
     Active Substance: TRAMADOL
     Dates: start: 20200814

REACTIONS (1)
  - Liver function test increased [None]

NARRATIVE: CASE EVENT DATE: 20200814
